FAERS Safety Report 5566415-3 (Version None)
Quarter: 2007Q4

REPORT INFORMATION
  Report Type: 
  Country: None (occurrence: None)
  Receive Date: 20071217
  Receipt Date: 20071217
  Transmission Date: 20080405
  Serious: No
  Sender: FDA-Public Use
  Company Number: None

PATIENT
  Age: 44 Year
  Sex: Female
  Weight: 104 kg

DRUGS (2)
  1. VANCOMYCIN [Suspect]
     Indication: PYELONEPHRITIS
     Dosage: 2.4 GM EVERY 24 HRS IV
     Route: 042
     Dates: start: 20071210, end: 20071212
  2. VANCOMYCIN [Suspect]

REACTIONS (1)
  - ADVERSE EVENT [None]
